FAERS Safety Report 23921860 (Version 1)
Quarter: 2024Q2

REPORT INFORMATION
  Report Type: Spontaneous
  Country: CA (occurrence: CA)
  Receive Date: 20240530
  Receipt Date: 20240530
  Transmission Date: 20240716
  Serious: Yes (Death, Hospitalization, Other)
  Sender: FDA-Public Use
  Company Number: None

PATIENT
  Age: 57 Year
  Sex: Male

DRUGS (10)
  1. TACROLIMUS [Suspect]
     Active Substance: TACROLIMUS
     Indication: Chronic graft versus host disease
     Dosage: ASKED BUT UNKNOWN
  2. CYCLOSPORINE [Suspect]
     Active Substance: CYCLOSPORINE
     Indication: Prophylaxis against graft versus host disease
     Dosage: ASKED BUT UNKNOWN
  3. CYCLOSPORINE [Suspect]
     Active Substance: CYCLOSPORINE
     Indication: Chronic graft versus host disease
     Dosage: ASKED BUT UNKNOWN
  4. BORTEZOMIB [Suspect]
     Active Substance: BORTEZOMIB
     Indication: Chronic graft versus host disease
     Dosage: ASKED BUT UNKNOWN
  5. IMATINIB [Suspect]
     Active Substance: IMATINIB
     Indication: Chronic graft versus host disease
     Dosage: ASKED BUT UNKNOWN
  6. CYCLOPHOSPHAMIDE [Suspect]
     Active Substance: CYCLOPHOSPHAMIDE
     Indication: Bone marrow conditioning regimen
     Dosage: ASKED BUT UNKNOWN
  7. SIROLIMUS [Suspect]
     Active Substance: SIROLIMUS
     Indication: Chronic graft versus host disease
     Dosage: ASKED BUT UNKNOWN
  8. METHOTREXATE SODIUM [Suspect]
     Active Substance: METHOTREXATE SODIUM
     Indication: Prophylaxis against graft versus host disease
     Dosage: ASKED BUT UNKNOWN
  9. MYCOPHENOLATE MOFETIL [Suspect]
     Active Substance: MYCOPHENOLATE MOFETIL
     Indication: Chronic graft versus host disease
     Dosage: ASKED BUT UNKNOWN
  10. RITUXIMAB [Suspect]
     Active Substance: RITUXIMAB
     Indication: Chronic graft versus host disease
     Dosage: ASKED BUT UNKNOWN

REACTIONS (10)
  - Acute kidney injury [Fatal]
  - Chronic graft versus host disease [Fatal]
  - Type III immune complex mediated reaction [Fatal]
  - Therapy non-responder [Fatal]
  - Thrombotic microangiopathy [Fatal]
  - Drug ineffective [Unknown]
  - Nephropathy [Fatal]
  - Polyomavirus-associated nephropathy [Fatal]
  - Product use in unapproved indication [Unknown]
  - Acute graft versus host disease [Fatal]
